FAERS Safety Report 7921675 (Version 4)
Quarter: 2013Q3

REPORT INFORMATION
  Report Type: Spontaneous
  Country: US (occurrence: US)
  Receive Date: 20110429
  Receipt Date: 20130821
  Transmission Date: 20140515
  Serious: Yes (Other)
  Sender: FDA-Public Use
  Company Number: US-ASTRAZENECA-2010SE51197

PATIENT
  Age: 79 Year
  Sex: Female

DRUGS (8)
  1. NEXIUM [Suspect]
     Indication: DIVERTICULITIS
     Dosage: DAILY
     Route: 048
  2. TOPROL XL [Suspect]
     Dosage: DAILY
     Route: 048
  3. CRESTOR [Suspect]
     Indication: BLOOD CHOLESTEROL ABNORMAL
     Dosage: DAILY
     Route: 048
  4. ZESTORETIC [Suspect]
     Route: 048
  5. GLIMEPIRIDE [Concomitant]
     Indication: DIABETES MELLITUS
     Dosage: DAILY
     Route: 048
     Dates: start: 2012
  6. BABY ASPIRIN [Concomitant]
     Route: 048
     Dates: start: 2004
  7. POTASSIUM [Concomitant]
     Indication: MINERAL SUPPLEMENTATION
     Dosage: DAILY
     Route: 048
  8. CALCIUM [Concomitant]
     Indication: MINERAL SUPPLEMENTATION
     Dosage: DAILY
     Route: 048

REACTIONS (6)
  - Gastric cancer [Not Recovered/Not Resolved]
  - Gastroenteritis viral [Unknown]
  - Sinusitis [Unknown]
  - Diabetes mellitus [Unknown]
  - Off label use [Unknown]
  - Drug dose omission [Not Recovered/Not Resolved]
